FAERS Safety Report 10028542 (Version 1)
Quarter: 2014Q1

REPORT INFORMATION
  Report Type: Spontaneous
  Country: US (occurrence: US)
  Receive Date: 20140321
  Receipt Date: 20140321
  Transmission Date: 20141002
  Serious: No
  Sender: FDA-Public Use
  Company Number: US-PFIZER INC-2014082568

PATIENT
  Age: 63 Year
  Sex: Female

DRUGS (3)
  1. SERTRALINE HCL [Suspect]
     Indication: DEPRESSION
     Dosage: 25 MG, DAILY
     Dates: start: 201401
  2. ALBUTEROL [Concomitant]
     Indication: ASTHMA
     Dosage: UNK, AS NEEDED FOR ASTHMA
  3. CLARITIN [Concomitant]
     Indication: HYPERSENSITIVITY
     Dosage: UNK, AS NEEDED

REACTIONS (2)
  - Headache [Unknown]
  - Hypersomnia [Unknown]
